FAERS Safety Report 10957940 (Version 1)
Quarter: 2015Q1

REPORT INFORMATION
  Report Type: Spontaneous
  Country: FR (occurrence: FR)
  Receive Date: 20150326
  Receipt Date: 20150326
  Transmission Date: 20150721
  Serious: Yes (Death, Hospitalization, Other)
  Sender: FDA-Public Use
  Company Number: FR-ASTRAZENECA-2015SE27096

PATIENT
  Age: 86 Year
  Sex: Male

DRUGS (14)
  1. KEPPRA [Suspect]
     Active Substance: LEVETIRACETAM
     Route: 048
     Dates: start: 20150119, end: 20150225
  2. COMTAN [Concomitant]
     Active Substance: ENTACAPONE
     Route: 048
  3. TAREG [Concomitant]
     Active Substance: VALSARTAN
     Route: 048
  4. BISOPROLOL [Concomitant]
     Active Substance: BISOPROLOL
     Route: 048
  5. INEXIUM [Suspect]
     Active Substance: ESOMEPRAZOLE
     Route: 048
     Dates: start: 20150127, end: 20150225
  6. XATRAL [Suspect]
     Active Substance: ALFUZOSIN
     Route: 048
     Dates: start: 201501, end: 20150225
  7. MODOPAR [Concomitant]
     Active Substance: BENSERAZIDE HYDROCHLORIDE\LEVODOPA
     Dosage: 200/50, 1 DF/D
     Route: 048
  8. ATARAX [Concomitant]
     Active Substance: HYDROXYZINE\HYDROXYZINE HYDROCHLORIDE
     Dosage: 25 MG, 2 DF IN 1 UPTAKE/D
     Route: 048
  9. LOVENOX [Concomitant]
     Active Substance: ENOXAPARIN SODIUM
     Route: 058
  10. TRIFLUCAN [Suspect]
     Active Substance: FLUCONAZOLE
     Indication: ORAL CANDIDIASIS
     Route: 048
     Dates: start: 20150214, end: 20150223
  11. MEDROL [Suspect]
     Active Substance: METHYLPREDNISOLONE
     Route: 048
     Dates: start: 201501, end: 20150225
  12. MODOPAR [Concomitant]
     Active Substance: BENSERAZIDE HYDROCHLORIDE\LEVODOPA
     Dosage: 100/25, 2 DF/D
     Route: 048
  13. DAFALGAN [Concomitant]
     Active Substance: ACETAMINOPHEN
     Dosage: 1G, 3 G MAX
     Route: 048
  14. ACTRAPID [Concomitant]
     Active Substance: INSULIN HUMAN
     Dosage: 4UL, 3TIMES/D
     Route: 058

REACTIONS (6)
  - Haematuria [Unknown]
  - Thrombocytopenia [Recovering/Resolving]
  - Seizure [Unknown]
  - Leukocytosis [Unknown]
  - Anaemia [Unknown]
  - Cardio-respiratory arrest [Fatal]

NARRATIVE: CASE EVENT DATE: 20150216
